FAERS Safety Report 4640752-9 (Version None)
Quarter: 2005Q2

REPORT INFORMATION
  Report Type: 
  Country: None (occurrence: None)
  Receive Date: 20050322
  Receipt Date: 20040209
  Transmission Date: 20051028
  Serious: Yes (Other)
  Sender: FDA-Public Use
  Company Number: HQWYE931611FEB04

PATIENT
  Age: 54 Year
  Sex: Female
  Weight: 65.83 kg

DRUGS (1)
  1. PROTONIX [Suspect]
     Indication: STOMACH DISCOMFORT
     Dosage: 40 MG 1X PER 1 DAY, ORAL
     Route: 048
     Dates: start: 20030201, end: 20040109

REACTIONS (1)
  - CHOLELITHIASIS [None]
